FAERS Safety Report 9582661 (Version 1)
Quarter: 2013Q4

REPORT INFORMATION
  Report Type: Spontaneous
  Country: US (occurrence: US)
  Receive Date: 20131002
  Receipt Date: 20131002
  Transmission Date: 20140711
  Serious: No
  Sender: FDA-Public Use
  Company Number: US-AMGEN-USASP2013041830

PATIENT
  Age: 47 Year
  Sex: Female
  Weight: 124.26 kg

DRUGS (10)
  1. ENBREL [Suspect]
     Indication: PRODUCT USED FOR UNKNOWN INDICATION
     Dosage: 50 MG, QWK
     Route: 058
  2. STRATTERA [Concomitant]
     Dosage: 80 MG, UNK
  3. CLONAZEPAM [Concomitant]
     Dosage: 1 MG, UNK
  4. PRAVASTATIN [Concomitant]
     Dosage: 40 MG, UNK
  5. LEVOTHYROXINE [Concomitant]
     Dosage: 100 MUG, UNK
  6. OXYCONTIN [Concomitant]
     Dosage: 20 MG CR, UNK
  7. OXYCODONE [Concomitant]
     Dosage: 20 MG, UNK
  8. CALCIUM D                          /00944201/ [Concomitant]
     Dosage: UNK
  9. MOTRIN IB [Concomitant]
     Dosage: 200 MG, UNK
  10. GABAPENTIN [Concomitant]
     Dosage: 600 MG, UNK

REACTIONS (1)
  - Fungal infection [Unknown]
